FAERS Safety Report 7806149-5 (Version None)
Quarter: 2011Q4

REPORT INFORMATION
  Report Type: 
  Country: None (occurrence: None)
  Receive Date: 20111011
  Receipt Date: 20111005
  Transmission Date: 20120403
  Serious: No
  Sender: FDA-Public Use
  Company Number: US-PFIZER INC-2011223160

PATIENT
  Sex: Female
  Weight: 56.689 kg

DRUGS (3)
  1. LISINOPRIL [Concomitant]
     Indication: BLOOD PRESSURE ABNORMAL
     Dosage: 20 MG, 2X/DAY
  2. PLAVIX [Concomitant]
     Dosage: UNK
  3. TOVIAZ [Suspect]
     Indication: INCONTINENCE
     Dosage: 8 MG, DAILY
     Route: 048
     Dates: start: 20110801

REACTIONS (1)
  - ABDOMINAL DISCOMFORT [None]
